FAERS Safety Report 22108332 (Version 1)
Quarter: 2023Q1

REPORT INFORMATION
  Report Type: Spontaneous
  Country: US (occurrence: US)
  Receive Date: 20230317
  Receipt Date: 20230317
  Transmission Date: 20230418
  Serious: No
  Sender: FDA-Public Use
  Company Number: US-ALVOGEN-2022-ALVOGEN-120951

PATIENT
  Sex: Female

DRUGS (6)
  1. ESTRADIOL [Suspect]
     Active Substance: ESTRADIOL
     Indication: Urinary tract infection
     Dosage: TWICE A WEEK
     Route: 067
  2. METFORMIN [Concomitant]
     Active Substance: METFORMIN HYDROCHLORIDE
     Indication: Diabetes mellitus
     Dosage: 500 MG BID
  3. GLIPIZIDE [Concomitant]
     Active Substance: GLIPIZIDE
     Indication: Diabetes mellitus
     Dosage: 10 MG OD BY MOUTH (ONCE IN WHILE ONLY WHEN SUGAR VERY HIGH)
  4. LISINOPRIL [Concomitant]
     Active Substance: LISINOPRIL
     Indication: Heart rate irregular
     Dosage: 10 MG BID
  5. METOPROLOL [Concomitant]
     Active Substance: METOPROLOL
     Indication: Heart rate irregular
     Dosage: 25 MG -BID
  6. DABIGATRAN [Concomitant]
     Active Substance: DABIGATRAN
     Indication: Heart rate irregular
     Dosage: 110 MG- BID EVERY 12HOURS

REACTIONS (1)
  - Stomatitis [Not Recovered/Not Resolved]
